FAERS Safety Report 4443108-7 (Version None)
Quarter: 2004Q3

REPORT INFORMATION
  Report Type: 
  Country: None (occurrence: None)
  Receive Date: 20040903
  Receipt Date: 20040628
  Transmission Date: 20050211
  Serious: Yes (Other)
  Sender: FDA-Public Use
  Company Number: 2004UW13322

PATIENT
  Age: 71 Year
  Sex: Male
  Weight: 77.1115 kg

DRUGS (4)
  1. CRESTOR [Suspect]
     Indication: BLOOD CHOLESTEROL INCREASED
     Dosage: 10 MG BID PO
     Route: 048
     Dates: end: 20040623
  2. ACIPHEX [Concomitant]
  3. MULTIVITAMIN ^LAPPE^ [Concomitant]
  4. METOPROLOL [Concomitant]

REACTIONS (4)
  - CHROMATURIA [None]
  - MYALGIA [None]
  - RENAL PAIN [None]
  - URINE ODOUR ABNORMAL [None]
